FAERS Safety Report 5909092-1 (Version None)
Quarter: 2008Q4

REPORT INFORMATION
  Report Type: 
  Country: None (occurrence: None)
  Receive Date: 20081006
  Receipt Date: 20080730
  Transmission Date: 20090506
  Serious: No
  Sender: FDA-Public Use
  Company Number: US-BAYER-200830131NA

PATIENT
  Age: 67 Year
  Sex: Female

DRUGS (1)
  1. MENOSTAR [Suspect]
     Indication: OSTEOPOROSIS PROPHYLAXIS
     Route: 062

REACTIONS (1)
  - APPLICATION SITE RASH [None]
